FAERS Safety Report 17260169 (Version 1)
Quarter: 2020Q1

REPORT INFORMATION
  Report Type: Spontaneous
  Country: SE (occurrence: SE)
  Receive Date: 20200111
  Receipt Date: 20200111
  Transmission Date: 20200409
  Serious: Yes (Other)
  Sender: FDA-Public Use
  Company Number: SE-TEVA-2020-SE-1166421

PATIENT
  Age: 55 Year
  Sex: Male

DRUGS (8)
  1. ATOMOXETINE. [Suspect]
     Active Substance: ATOMOXETINE HYDROCHLORIDE
     Indication: ATTENTION DEFICIT/HYPERACTIVITY DISORDER
     Dosage: 100 MILLIGRAM DAILY; DOSAGE 1 + 0 + 0
     Route: 048
  2. LERCANIDIPINE [Concomitant]
     Active Substance: LERCANIDIPINE
     Dates: start: 20190913
  3. OMECAT [Concomitant]
     Active Substance: OMEPRAZOLE
     Dates: start: 20190509
  4. ALPOXEN [Concomitant]
     Active Substance: NAPROXEN
     Dates: start: 20181012
  5. METFORMIN [Concomitant]
     Active Substance: METFORMIN HYDROCHLORIDE
     Dates: start: 20190805
  6. MIRTAZAPINE. [Concomitant]
     Active Substance: MIRTAZAPINE
     Dates: start: 20190709
  7. METOMYLAN [Concomitant]
     Active Substance: METOPROLOL SUCCINATE
     Dates: start: 20190826
  8. LOSARTAN. [Concomitant]
     Active Substance: LOSARTAN
     Dates: start: 20191111

REACTIONS (2)
  - Hallucination, visual [Recovered/Resolved]
  - Product substitution issue [Recovered/Resolved]

NARRATIVE: CASE EVENT DATE: 20191201
